FAERS Safety Report 16334615 (Version 4)
Quarter: 2020Q2

REPORT INFORMATION
  Report Type: Spontaneous
  Country: US (occurrence: US)
  Receive Date: 20190520
  Receipt Date: 20200417
  Transmission Date: 20200713
  Serious: Yes (Other)
  Sender: FDA-Public Use
  Company Number: US-GILEAD-2019-0408476

PATIENT
  Age: 66 Year
  Sex: Male

DRUGS (19)
  1. VIREAD [Suspect]
     Active Substance: TENOFOVIR DISOPROXIL FUMARATE
     Indication: HIV INFECTION
     Dosage: UNK
     Route: 048
     Dates: start: 201309, end: 201508
  2. GABAPENTIN. [Concomitant]
     Active Substance: GABAPENTIN
  3. TRUVADA [Suspect]
     Active Substance: EMTRICITABINE\TENOFOVIR DISOPROXIL FUMARATE
     Indication: HIV INFECTION
     Dosage: UNK
     Route: 065
     Dates: start: 201508, end: 2017
  4. ASPIRIN EC [Concomitant]
     Active Substance: ASPIRIN
  5. PROAIR HFA [Concomitant]
     Active Substance: ALBUTEROL SULFATE
  6. FUROSEMIDE. [Concomitant]
     Active Substance: FUROSEMIDE
  7. ATENOLOL. [Concomitant]
     Active Substance: ATENOLOL
  8. CALCIUM CARBONATE WITH D3 [Concomitant]
     Active Substance: CALCIUM CARBONATE\CHOLECALCIFEROL
  9. RITONAVIR. [Concomitant]
     Active Substance: RITONAVIR
  10. FOSINOPRIL [Concomitant]
     Active Substance: FOSINOPRIL
  11. PAROXETINE. [Concomitant]
     Active Substance: PAROXETINE
  12. LYRICA [Concomitant]
     Active Substance: PREGABALIN
  13. DRONABINOL. [Concomitant]
     Active Substance: DRONABINOL
  14. ERGOCALCIFEROL. [Concomitant]
     Active Substance: ERGOCALCIFEROL
  15. BIKTARVY [Concomitant]
     Active Substance: BICTEGRAVIR SODIUM\EMTRICITABINE\TENOFOVIR ALAFENAMIDE FUMARATE
  16. DESCOVY [Concomitant]
     Active Substance: EMTRICITABINE\TENOFOVIR ALAFENAMIDE FUMARATE
  17. PREZCOBIX [Concomitant]
     Active Substance: COBICISTAT\DARUNAVIR ETHANOLATE
  18. PRAVASTATIN. [Concomitant]
     Active Substance: PRAVASTATIN
  19. ATAZANAVIR. [Concomitant]
     Active Substance: ATAZANAVIR

REACTIONS (9)
  - Osteopenia [Not Recovered/Not Resolved]
  - Economic problem [Unknown]
  - Pain [Unknown]
  - Multiple fractures [Recovered/Resolved]
  - Chronic kidney disease [Not Recovered/Not Resolved]
  - Emotional distress [Unknown]
  - Anxiety [Unknown]
  - Osteoporosis [Not Recovered/Not Resolved]
  - Anhedonia [Unknown]

NARRATIVE: CASE EVENT DATE: 201605
